FAERS Safety Report 7060554-6 (Version None)
Quarter: 2010Q4

REPORT INFORMATION
  Report Type: 
  Country: None (occurrence: None)
  Receive Date: 20101025
  Receipt Date: 20101014
  Transmission Date: 20110411
  Serious: Yes (Other)
  Sender: FDA-Public Use
  Company Number: JP-ROCHE-704833

PATIENT
  Sex: Male
  Weight: 49 kg

DRUGS (11)
  1. XELODA [Suspect]
     Indication: LARGE INTESTINE CARCINOMA
     Dosage: 2 WEEKS ADMINISTRATION FOLLOWED BY 1 WEEK REST
     Route: 048
     Dates: start: 20100414, end: 20100512
  2. XELODA [Suspect]
     Dosage: 2 WEEKS ADMINISTRATION FOLLOWED BY 1 WEEK REST
     Route: 048
     Dates: start: 20100513
  3. OXALIPLATIN [Suspect]
     Indication: COLON CANCER METASTATIC
     Route: 041
     Dates: start: 20100414
  4. PRECIPITATED CALCIUM CARBONATE [Suspect]
     Indication: PRODUCT USED FOR UNKNOWN INDICATION
     Route: 048
     Dates: start: 20080801
  5. SALOBEL [Suspect]
     Indication: HYPERTENSION
     Route: 048
     Dates: start: 20080801
  6. LASIX [Suspect]
     Indication: HYPERTENSION
     Route: 048
     Dates: start: 20080801
  7. AMLODIPINE [Suspect]
     Indication: HYPERTENSION
     Route: 048
     Dates: start: 20100303
  8. DIOVAN [Suspect]
     Indication: HYPERTENSION
     Route: 048
     Dates: start: 20100303
  9. RESTAMIN [Concomitant]
     Dosage: DRUG: DIPHENHYDRAMINE HYDROCHLORIDE
     Route: 048
  10. KYTRIL [Concomitant]
     Dosage: DOSE FORM: UNCERTAINTY; NOTE: DOSE IS UNCERTAIN
     Route: 065
  11. DECADRON [Concomitant]
     Dosage: DOSE FORM: UNCERTAINTY; NOTE: DOSAGE IS UNCERTAIN
     Route: 065

REACTIONS (1)
  - BLOOD POTASSIUM INCREASED [None]
